FAERS Safety Report 8317981-6 (Version None)
Quarter: 2012Q2

REPORT INFORMATION
  Report Type: 
  Country: None (occurrence: None)
  Receive Date: 20120427
  Receipt Date: 20120423
  Transmission Date: 20120825
  Serious: No
  Sender: FDA-Public Use
  Company Number: US-BAYER-2012-040803

PATIENT
  Sex: Male

DRUGS (2)
  1. ALEVE [Suspect]
     Indication: MUSCULOSKELETAL PAIN
  2. ALEVE [Suspect]
     Indication: NECK PAIN
     Dosage: 2 DF, ONCE
     Route: 048

REACTIONS (1)
  - ABNORMAL DREAMS [None]
